FAERS Safety Report 12588660 (Version 1)
Quarter: 2016Q3

REPORT INFORMATION
  Report Type: Spontaneous
  Country: US (occurrence: US)
  Receive Date: 20160725
  Receipt Date: 20160725
  Transmission Date: 20161109
  Serious: No
  Sender: FDA-Public Use
  Company Number: US-JNJFOC-20160603604

PATIENT
  Age: 59 Year
  Sex: Female
  Weight: 61.24 kg

DRUGS (3)
  1. RHINOCORT [Concomitant]
     Active Substance: BUDESONIDE
     Indication: MULTIPLE ALLERGIES
     Dosage: FOR 2 WEEKS
     Route: 065
  2. ZYRTEC-D [Suspect]
     Active Substance: CETIRIZINE HYDROCHLORIDE\PSEUDOEPHEDRINE HYDROCHLORIDE
     Route: 048
  3. ZYRTEC-D [Suspect]
     Active Substance: CETIRIZINE HYDROCHLORIDE\PSEUDOEPHEDRINE HYDROCHLORIDE
     Indication: SEASONAL ALLERGY
     Route: 048
     Dates: start: 20151001, end: 20160602

REACTIONS (2)
  - Product difficult to swallow [Unknown]
  - Choking sensation [Recovered/Resolved]

NARRATIVE: CASE EVENT DATE: 20160602
